FAERS Safety Report 15841961 (Version 1)
Quarter: 2018Q4

REPORT INFORMATION
  Report Type: Spontaneous
  Country: US (occurrence: US)
  Receive Date: 20181226
  Receipt Date: 20181226
  Transmission Date: 20190205
  Serious: Yes (Life-Threatening, Hospitalization, Disabling)
  Sender: FDA-Public Use
  Company Number: None

PATIENT
  Age: 54 Year
  Sex: Male
  Weight: 85.5 kg

DRUGS (12)
  1. LOSARTAN. [Concomitant]
     Active Substance: LOSARTAN
  2. AMLODAPINE BESYLATE [Concomitant]
  3. TYLENOL [Concomitant]
     Active Substance: ACETAMINOPHEN
  4. DICYCLOMINE [Concomitant]
     Active Substance: DICYCLOMINE HYDROCHLORIDE
  5. SPIRONOLACTONE. [Concomitant]
     Active Substance: SPIRONOLACTONE
  6. FENOFIBRATE. [Concomitant]
     Active Substance: FENOFIBRATE
  7. MIRALAX [Concomitant]
     Active Substance: POLYETHYLENE GLYCOL 3350
  8. MULTIVITAMIN [Concomitant]
     Active Substance: VITAMINS
  9. ALBUTEROL SULFATE. [Concomitant]
     Active Substance: ALBUTEROL SULFATE
  10. LEVOFLOXACIN. [Suspect]
     Active Substance: LEVOFLOXACIN
  11. PREVACID [Concomitant]
     Active Substance: LANSOPRAZOLE
  12. CIPROFLOXACIN 500MG TABLETS [Suspect]
     Active Substance: CIPROFLOXACIN
     Indication: DIVERTICULITIS
     Dosage: ?          QUANTITY:14 TABLET(S);?
     Route: 048
     Dates: start: 20170613, end: 20170619

REACTIONS (11)
  - Loss of consciousness [None]
  - Back pain [None]
  - Hypoaesthesia [None]
  - Diverticulitis [None]
  - Abdominal pain [None]
  - Chest pain [None]
  - Bradycardia [None]
  - Electrocardiogram QT prolonged [None]
  - Throat irritation [None]
  - Adverse drug reaction [None]
  - Disease recurrence [None]

NARRATIVE: CASE EVENT DATE: 20170613
